FAERS Safety Report 9049747 (Version 1)
Quarter: 2013Q1

REPORT INFORMATION
  Report Type: Spontaneous
  Country: JP (occurrence: JP)
  Receive Date: 20130205
  Receipt Date: 20130205
  Transmission Date: 20140127
  Serious: Yes (Hospitalization)
  Sender: FDA-Public Use
  Company Number: JP-ROCHE-1184354

PATIENT
  Age: 44 Year
  Sex: Male

DRUGS (10)
  1. RIVOTRIL [Suspect]
     Indication: PRODUCT USED FOR UNKNOWN INDICATION
     Route: 048
  2. BLONANSERIN [Suspect]
     Indication: PRODUCT USED FOR UNKNOWN INDICATION
     Route: 048
  3. CHLORPROMAZINE HYDROCHLORIDE [Suspect]
     Indication: PRODUCT USED FOR UNKNOWN INDICATION
     Route: 048
  4. BIPERIDEN HYDROCHLORIDE [Concomitant]
     Route: 048
  5. FLUNITRAZEPAM [Concomitant]
     Route: 048
  6. QUAZEPAM [Concomitant]
     Route: 048
  7. ESTAZOLAM [Concomitant]
     Route: 048
  8. BROTIZOLAM [Concomitant]
     Route: 048
  9. ZOPICLONE [Concomitant]
     Route: 048
  10. PROPRANOLOL HYDROCHLORIDE [Concomitant]
     Route: 048

REACTIONS (2)
  - Rhabdomyolysis [Recovered/Resolved]
  - Renal failure acute [Recovered/Resolved]
